FAERS Safety Report 21654537 (Version 2)
Quarter: 2023Q2

REPORT INFORMATION
  Report Type: Spontaneous
  Country: JP (occurrence: JP)
  Receive Date: 20221129
  Receipt Date: 20230628
  Transmission Date: 20230722
  Serious: Yes (Hospitalization, Other)
  Sender: FDA-Public Use
  Company Number: JP-MSD-M2022-49710

PATIENT
  Age: 70 Year
  Sex: Female

DRUGS (1)
  1. KEYTRUDA [Suspect]
     Active Substance: PEMBROLIZUMAB
     Indication: Salivary gland cancer stage IV
     Dosage: 200 MILLIGRAM, Q3W
     Route: 041
     Dates: start: 20220905, end: 20221102

REACTIONS (4)
  - Listeriosis [Recovered/Resolved]
  - Enteritis infectious [Recovering/Resolving]
  - Listeria sepsis [Recovered/Resolved]
  - Meningitis listeria [Recovering/Resolving]

NARRATIVE: CASE EVENT DATE: 20221109
